FAERS Safety Report 22595233 (Version 1)
Quarter: 2023Q2

REPORT INFORMATION
  Report Type: Spontaneous
  Country: CN (occurrence: CN)
  Receive Date: 20230613
  Receipt Date: 20230613
  Transmission Date: 20230722
  Serious: Yes (Life-Threatening, Other)
  Sender: FDA-Public Use
  Company Number: CN-PFIZER INC-PV202300102614

PATIENT
  Age: 25 Year
  Sex: Male

DRUGS (3)
  1. CYTARABINE [Suspect]
     Active Substance: CYTARABINE
     Indication: Acute leukaemia
     Dosage: 1500 MG, 2X/DAY
     Route: 041
     Dates: start: 20230522, end: 20230522
  2. CYTARABINE [Suspect]
     Active Substance: CYTARABINE
     Dosage: 2000 MG, 2X/DAY
     Route: 041
     Dates: start: 20230522, end: 20230525
  3. CYTARABINE [Suspect]
     Active Substance: CYTARABINE
     Dosage: 2000 MG, 1X/DAY
     Route: 041
     Dates: start: 20230525, end: 20230525

REACTIONS (1)
  - Myelosuppression [Recovering/Resolving]

NARRATIVE: CASE EVENT DATE: 20230530
